FAERS Safety Report 20570490 (Version 1)
Quarter: 2022Q1

REPORT INFORMATION
  Report Type: Spontaneous
  Country: CN (occurrence: CN)
  Receive Date: 20220309
  Receipt Date: 20220309
  Transmission Date: 20220423
  Serious: Yes (Life-Threatening, Hospitalization, Other)
  Sender: FDA-Public Use
  Company Number: CN-SA-SAC20220307001772

PATIENT
  Age: 53 Year
  Sex: Male

DRUGS (4)
  1. INSULIN GLARGINE [Suspect]
     Active Substance: INSULIN GLARGINE
     Indication: Hyperglycaemia
     Dosage: 14 IU, QD
     Route: 058
     Dates: start: 20080201, end: 20220225
  2. INSULIN ASPART [Concomitant]
     Active Substance: INSULIN ASPART
     Indication: Hyperglycaemia
     Route: 058
     Dates: start: 20080201, end: 20220225
  3. DEXTROSE [Concomitant]
     Active Substance: DEXTROSE
     Dosage: 80 ML
     Route: 040
     Dates: start: 20220225
  4. EQUILIBRIUM [Concomitant]
     Dosage: EQUILIBRIUM LIQUID
     Route: 041
     Dates: start: 20220225

REACTIONS (1)
  - Hypoglycaemic coma [Recovering/Resolving]

NARRATIVE: CASE EVENT DATE: 20220225
